FAERS Safety Report 9348372 (Version 1)
Quarter: 2013Q2

REPORT INFORMATION
  Report Type: Spontaneous
  Country: US (occurrence: None)
  Receive Date: 20130613
  Receipt Date: 20130613
  Transmission Date: 20140414
  Serious: Yes (Death, Life-Threatening, Hospitalization, Disabling)
  Sender: FDA-Public Use
  Company Number: None

PATIENT
  Sex: Male
  Weight: 99.79 kg

DRUGS (2)
  1. PROZAC [Suspect]
     Indication: DEPRESSION
     Dosage: 40 MG^S  3 X DAILEY??2003 -} SNGLE DRUGS?BHST - DR. JMES, HALL MD??????BHST - DR. JAMES HALL MD
     Dates: start: 2003
  2. PROZAC [Suspect]
     Indication: PANIC ATTACK
     Dosage: 40 MG^S  3 X DAILEY??2003 -} SNGLE DRUGS?BHST - DR. JMES, HALL MD??????BHST - DR. JAMES HALL MD
     Dates: start: 2003

REACTIONS (2)
  - Convulsion [None]
  - Panic attack [None]
